FAERS Safety Report 5392184-6 (Version None)
Quarter: 2007Q3

REPORT INFORMATION
  Report Type: 
  Country: None (occurrence: None)
  Receive Date: 20070717
  Receipt Date: 20070717
  Transmission Date: 20080115
  Serious: Yes (Other)
  Sender: FDA-Public Use
  Company Number: None

PATIENT
  Sex: Male
  Weight: 68 kg

DRUGS (13)
  1. GLEEVEC [Suspect]
     Indication: KAPOSI'S SARCOMA
     Dosage: 400MG QD PO
     Route: 048
     Dates: start: 20070424
  2. BACTRIM DS [Concomitant]
  3. ACYCLOVIR [Concomitant]
  4. LOTRISOME CREAM [Concomitant]
  5. MARINOL [Concomitant]
  6. ZITHROMAX [Concomitant]
  7. VICODIN [Concomitant]
  8. NELFINAVIR [Concomitant]
  9. EFAVIRENZ [Concomitant]
  10. SUSTIVA [Concomitant]
  11. TENOFOVIR [Concomitant]
  12. KEPPRA [Concomitant]
  13. EPSICOM [Concomitant]

REACTIONS (3)
  - BLOOD CREATINE PHOSPHOKINASE INCREASED [None]
  - DRUG ADMINISTRATION ERROR [None]
  - GRAND MAL CONVULSION [None]
